FAERS Safety Report 4460325-0 (Version None)
Quarter: 2004Q3

REPORT INFORMATION
  Report Type: 
  Country: None (occurrence: None)
  Receive Date: 20040928
  Receipt Date: 20040317
  Transmission Date: 20050211
  Serious: No
  Sender: FDA-Public Use
  Company Number: US-GLAXOSMITHKLINE-A0503205A

PATIENT
  Age: 74 Year
  Sex: Female

DRUGS (20)
  1. SEREVENT [Suspect]
     Indication: ASTHMA
     Dosage: 1PUFF TWICE PER DAY
     Route: 055
  2. QVAR 40 [Concomitant]
  3. MAXAIR [Concomitant]
  4. TIAZAC [Concomitant]
  5. AVAPRO [Concomitant]
  6. FUROSEMIDE [Concomitant]
  7. HYOSCYAMINE [Concomitant]
  8. PRAVACHOL [Concomitant]
  9. FOSAMAX [Concomitant]
  10. ACTONEL [Concomitant]
  11. PREVACID [Concomitant]
  12. VITAMIN D [Concomitant]
  13. CLARITIN [Concomitant]
  14. DIAZEPAM [Concomitant]
  15. ARTHROTEC [Concomitant]
  16. ASPIRIN [Concomitant]
  17. CALCIUM [Concomitant]
  18. VITAMIN E [Concomitant]
  19. ONE A DAY VITAMIN [Concomitant]
  20. BLEPHAMIDE [Concomitant]
     Route: 061

REACTIONS (3)
  - CHEST PAIN [None]
  - LUNG DISORDER [None]
  - NASOPHARYNGITIS [None]
